FAERS Safety Report 4263611-2 (Version None)
Quarter: 2004Q1

REPORT INFORMATION
  Report Type: 
  Country: None (occurrence: None)
  Receive Date: 20040102
  Receipt Date: 20031022
  Transmission Date: 20041129
  Serious: Yes (Hospitalization)
  Sender: FDA-Public Use
  Company Number: 2003IC000610

PATIENT
  Age: 66 Year
  Sex: Male

DRUGS (6)
  1. FLUOROURACIL [Suspect]
     Indication: LARGE INTESTINE CARCINOMA
     Dosage: 950 MG; DAILY; INTRAVENOUS
     Route: 042
     Dates: start: 20030610, end: 20030902
  2. ISOVORIN [Concomitant]
  3. CARDENALIN [Concomitant]
  4. VALSARTAN [Concomitant]
  5. NORVASC [Concomitant]
  6. PROSTAL [Concomitant]

REACTIONS (9)
  - CEREBRAL ATROPHY [None]
  - DEHYDRATION [None]
  - DIARRHOEA [None]
  - DIFFICULTY IN WALKING [None]
  - DYSPNOEA [None]
  - LEUKOENCEPHALOPATHY [None]
  - MALNUTRITION [None]
  - SPEECH DISORDER [None]
  - TONGUE PARALYSIS [None]
